FAERS Safety Report 7259462-7 (Version None)
Quarter: 2011Q1

REPORT INFORMATION
  Report Type: 
  Country: None (occurrence: None)
  Receive Date: 20110129
  Receipt Date: 20100827
  Transmission Date: 20110831
  Serious: No
  Sender: FDA-Public Use
  Company Number: US-ABBOTT-10P-163-0666621-00

PATIENT
  Age: 49 Year
  Sex: Female

DRUGS (8)
  1. PREDNISONE [Concomitant]
     Indication: PRODUCT USED FOR UNKNOWN INDICATION
  2. BONIVA [Concomitant]
     Indication: OSTEOPOROSIS
  3. HUMIRA [Suspect]
     Indication: RHEUMATOID ARTHRITIS
     Dates: start: 20100201
  4. CELEXA [Concomitant]
     Indication: DEPRESSION
     Route: 048
  5. IMURAN [Concomitant]
     Indication: RHEUMATOID ARTHRITIS
  6. HUMIRA [Suspect]
     Dates: start: 20100701
  7. MOBIC [Concomitant]
     Indication: ARTHRITIS
  8. VICODIN [Concomitant]
     Indication: PAIN
     Dosage: 5/500

REACTIONS (1)
  - DRUG INEFFECTIVE [None]
